FAERS Safety Report 5627126-9 (Version None)
Quarter: 2008Q1

REPORT INFORMATION
  Report Type: 
  Country: None (occurrence: None)
  Receive Date: 20080212
  Receipt Date: 20080212
  Transmission Date: 20080703
  Serious: Yes (Other)
  Sender: FDA-Public Use
  Company Number: None

PATIENT
  Age: 31 Year
  Sex: Male
  Weight: 70.3075 kg

DRUGS (1)
  1. CHANTIX [Suspect]
     Indication: SMOKING CESSATION THERAPY
     Dosage: STARTER PACK 1/DAILY PO
     Route: 048
     Dates: start: 20070801, end: 20070810

REACTIONS (8)
  - ABNORMAL BEHAVIOUR [None]
  - FEELING ABNORMAL [None]
  - HALLUCINATION [None]
  - INCOHERENT [None]
  - MENTAL STATUS CHANGES [None]
  - NIGHTMARE [None]
  - PERSONALITY CHANGE [None]
  - THINKING ABNORMAL [None]
